FAERS Safety Report 7267734-5 (Version None)
Quarter: 2011Q1

REPORT INFORMATION
  Report Type: 
  Country: None (occurrence: None)
  Receive Date: 20110201
  Receipt Date: 20110119
  Transmission Date: 20110831
  Serious: Yes (Hospitalization, Other)
  Sender: FDA-Public Use
  Company Number: US-CELGENEUS-163-21880-10122965

PATIENT
  Sex: Female
  Weight: 66.738 kg

DRUGS (16)
  1. REVLIMID [Suspect]
     Indication: MULTIPLE MYELOMA
     Route: 048
     Dates: start: 20090827, end: 20090909
  2. HYDROCORTISONE [Concomitant]
     Route: 061
  3. ALLOPURINOL [Concomitant]
     Route: 048
  4. ATIVAN [Concomitant]
     Route: 048
  5. ATENOLOL [Concomitant]
     Route: 048
  6. DEXAMETHASONE [Concomitant]
     Indication: MULTIPLE MYELOMA
     Route: 048
  7. TRIAMTERENE AND HYDROCHLOROTHIAZIDE [Concomitant]
     Dosage: 25-37.5
     Route: 048
  8. MUPIROCIN [Concomitant]
     Route: 061
  9. VITAMIN B-12 [Concomitant]
     Route: 065
  10. REVLIMID [Suspect]
     Route: 048
     Dates: start: 20101220
  11. LOVASTATIN [Concomitant]
     Route: 048
  12. GLYBURIDE [Concomitant]
     Route: 048
  13. CLOPIDOGREL [Concomitant]
     Route: 048
  14. ASPIRIN [Concomitant]
     Route: 048
  15. HYDRALAZINE [Concomitant]
     Route: 048
  16. DEXAMETHASONE [Concomitant]
     Dates: start: 20090827, end: 20090901

REACTIONS (3)
  - NASOPHARYNGITIS [None]
  - HAEMOGLOBIN DECREASED [None]
  - DUBIN-JOHNSON SYNDROME [None]
